APPROVED DRUG PRODUCT: INDOMETHACIN
Active Ingredient: INDOMETHACIN
Strength: 75MG
Dosage Form/Route: CAPSULE, EXTENDED RELEASE;ORAL
Application: A074464 | Product #001
Applicant: SANDOZ INC
Approved: May 28, 1998 | RLD: No | RS: No | Type: DISCN